FAERS Safety Report 4627036-X (Version None)
Quarter: 2005Q1

REPORT INFORMATION
  Report Type: 
  Country: None (occurrence: None)
  Receive Date: 20050331
  Receipt Date: 20050321
  Transmission Date: 20050727
  Serious: Yes (Other)
  Sender: FDA-Public Use
  Company Number: 2005027058

PATIENT
  Age: 78 Year
  Sex: Female
  Weight: 65.7716 kg

DRUGS (4)
  1. LATANOPROST [Suspect]
     Indication: OCULAR HYPERTENSION
     Dosage: 1 DROP (1 DROP, 1 IN 1 D), OPHTHALMIC
     Route: 047
     Dates: start: 20021022, end: 20041026
  2. LATANOPROST [Suspect]
     Indication: OPEN ANGLE GLAUCOMA
     Dosage: 1 DROP (1 DROP, 1 IN 1 D), OPHTHALMIC
     Route: 047
     Dates: start: 20021022, end: 20041026
  3. TRAVATAN [Suspect]
     Indication: OCULAR HYPERTENSION
     Dosage: (1 IN 1 D), OPHTHALMIC
     Route: 047
     Dates: start: 20041001
  4. TRAVATAN [Suspect]
     Indication: OPEN ANGLE GLAUCOMA
     Dosage: (1 IN 1 D), OPHTHALMIC
     Route: 047
     Dates: start: 20041001

REACTIONS (10)
  - EYE IRRITATION [None]
  - EYE PRURITUS [None]
  - INTRAOCULAR PRESSURE INCREASED [None]
  - MACULAR DEGENERATION [None]
  - OCULAR HYPERAEMIA [None]
  - OPTIC NERVE DISORDER [None]
  - PHARMACEUTICAL PRODUCT COMPLAINT [None]
  - PHOTOPHOBIA [None]
  - SKIN BURNING SENSATION [None]
  - UNEVALUABLE EVENT [None]
